FAERS Safety Report 22091406 (Version 1)
Quarter: 2023Q1

REPORT INFORMATION
  Report Type: Spontaneous
  Country: CZ (occurrence: CZ)
  Receive Date: 20230314
  Receipt Date: 20230314
  Transmission Date: 20230417
  Serious: Yes (Life-Threatening, Hospitalization, Other)
  Sender: FDA-Public Use
  Company Number: None

PATIENT
  Age: 51 Year
  Sex: Male
  Weight: 63 kg

DRUGS (5)
  1. YERVOY [Suspect]
     Active Substance: IPILIMUMAB
     Indication: Renal cancer
     Dosage: DOSE OF 3MG/KG/3 WEEKS, TWO DOSES OF 60MG WERE ADMINISTERED
     Route: 042
     Dates: start: 20221212, end: 20221230
  2. OPDIVO [Suspect]
     Active Substance: NIVOLUMAB
     Indication: Renal cancer
     Dosage: DOSE OF 3MG/KG/3 WEEKS, TWO DOSES OF 180MG WERE ADMINISTERED
     Route: 042
     Dates: start: 20221212, end: 20221230
  3. METOCLOPRAMIDE HYDROCHLORIDE [Concomitant]
     Active Substance: METOCLOPRAMIDE HYDROCHLORIDE
     Indication: Prophylaxis of nausea and vomiting
     Dosage: ADMINISTERED WITH CHEMOTHERAPY, A TOTAL OF 2 TIMES
     Route: 042
     Dates: start: 20221212, end: 20221230
  4. ENOXAPARIN SODIUM [Concomitant]
     Active Substance: ENOXAPARIN SODIUM
     Indication: Thrombosis
     Dosage: ONCE A DAY
     Route: 058
     Dates: start: 20221209
  5. PARAMAX [PARACETAMOL] [Concomitant]
     Indication: Chemotherapy side effect prophylaxis
     Dosage: TWO 1000MG TABLETS WERE ADMINISTERED WITH CHEMOTHERAPY, A TOTAL OF TWO TIMES
     Route: 048
     Dates: start: 20221212, end: 20221230

REACTIONS (2)
  - Cardiac failure [Recovering/Resolving]
  - Prescribed underdose [Unknown]

NARRATIVE: CASE EVENT DATE: 20230121
